FAERS Safety Report 24218027 (Version 1)
Quarter: 2024Q3

REPORT INFORMATION
  Report Type: Spontaneous
  Country: US (occurrence: US)
  Receive Date: 20240816
  Receipt Date: 20240816
  Transmission Date: 20241017
  Serious: No
  Sender: IPSEN
  Company Number: US-IPSEN Group, Research and Development-2024-15824

PATIENT
  Sex: Female

DRUGS (1)
  1. SOHONOS [Suspect]
     Active Substance: PALOVAROTENE
     Indication: Fibrodysplasia ossificans progressiva
     Dosage: 5 MG DAILY
     Route: 048
     Dates: start: 202310

REACTIONS (2)
  - Ear discomfort [Unknown]
  - Excessive cerumen production [Unknown]
